FAERS Safety Report 12229766 (Version 1)
Quarter: 2016Q1

REPORT INFORMATION
  Report Type: Spontaneous
  Country: US (occurrence: None)
  Receive Date: 20160331
  Receipt Date: 20160331
  Transmission Date: 20160526
  Serious: No
  Sender: FDA-Public Use
  Company Number: None

PATIENT
  Age: 50 Year
  Sex: Female

DRUGS (1)
  1. XELJANZ [Suspect]
     Active Substance: TOFACITINIB CITRATE
     Indication: RHEUMATOID ARTHRITIS
     Dosage: 1 TABLET BID PO
     Route: 048
     Dates: start: 20160301

REACTIONS (3)
  - Seasonal allergy [None]
  - Sinusitis [None]
  - Fatigue [None]

NARRATIVE: CASE EVENT DATE: 201603
